FAERS Safety Report 4358633-7 (Version None)
Quarter: 2004Q2

REPORT INFORMATION
  Report Type: 
  Country: None (occurrence: None)
  Receive Date: 20040505
  Receipt Date: 20040419
  Transmission Date: 20050107
  Serious: No
  Sender: FDA-Public Use
  Company Number: 236439

PATIENT
  Age: 28 Year
  Sex: Male
  Weight: 96 kg

DRUGS (3)
  1. NOVOSEVEN(EPTACOG ALFA (ACTIVATED)) POWDER FOR INJECTION, 4.8MG [Suspect]
     Indication: GINGIVAL BLEEDING
     Dosage: SEE IMAGE
     Route: 042
     Dates: start: 20040124, end: 20040124
  2. NOVOSEVEN(EPTACOG ALFA (ACTIVATED)) POWDER FOR INJECTION, 4.8MG [Suspect]
     Indication: GINGIVAL BLEEDING
     Dosage: SEE IMAGE
     Route: 042
     Dates: start: 20040126, end: 20040128
  3. NOVOSEVEN(EPTACOG ALFA (ACTIVATED)) POWDER FOR INJECTION, 4.8MG [Suspect]
     Indication: GINGIVAL BLEEDING
     Dosage: SEE IMAGE
     Route: 042
     Dates: start: 20040129, end: 20040129

REACTIONS (6)
  - DIALYSIS [None]
  - GINGIVAL BLEEDING [None]
  - HYDRONEPHROSIS [None]
  - RENAL FAILURE ACUTE [None]
  - THROMBOSIS [None]
  - URINARY TRACT OBSTRUCTION [None]
